FAERS Safety Report 9256779 (Version 2)
Quarter: 2013Q3

REPORT INFORMATION
  Report Type: Spontaneous
  Country: US (occurrence: US)
  Receive Date: 20130426
  Receipt Date: 20130705
  Transmission Date: 20140515
  Serious: Yes (Hospitalization, Other)
  Sender: FDA-Public Use
  Company Number: US-ASTRAZENECA-2013SE27532

PATIENT
  Sex: Male

DRUGS (17)
  1. NEXIUM [Suspect]
     Route: 048
     Dates: start: 20100311
  2. ZANTAC [Concomitant]
  3. PEPCID [Concomitant]
  4. TUMS [Concomitant]
  5. PEPTO BISMOL [Concomitant]
  6. ROLAIDS [Concomitant]
  7. OXYCODONE [Concomitant]
     Route: 048
     Dates: start: 20120121
  8. METOPROLOL [Concomitant]
     Route: 048
     Dates: start: 20120121
  9. LISINOPRIL [Concomitant]
     Route: 048
     Dates: start: 20120121
  10. ATIVAN [Concomitant]
     Dates: start: 20120121
  11. PREDNISONE [Concomitant]
  12. THIAMINE [Concomitant]
  13. CLONIDINE [Concomitant]
  14. LORTAB [Concomitant]
     Dosage: 5-10MG EVERY 8 HRS AS NEEDED
  15. PANTOPRAZOLE [Concomitant]
     Route: 048
     Dates: start: 20120101
  16. HYDROCHLOROTHIAZIDE [Concomitant]
     Route: 048
     Dates: start: 20120106
  17. AMITRIPTYLINE HCL [Concomitant]
     Dates: start: 20120228

REACTIONS (11)
  - Convulsion [Unknown]
  - Clavicle fracture [Unknown]
  - Bone neoplasm [Unknown]
  - Osteoporosis [Unknown]
  - Bone density decreased [Unknown]
  - Ankle fracture [Unknown]
  - Impaired healing [Unknown]
  - Bone pain [Unknown]
  - Arthritis [Unknown]
  - Oedema peripheral [Unknown]
  - Depression [Unknown]
